FAERS Safety Report 5029433-X (Version None)
Quarter: 2006Q2

REPORT INFORMATION
  Report Type: 
  Country: None (occurrence: None)
  Receive Date: 20060613
  Receipt Date: 20060531
  Transmission Date: 20061013
  Serious: Yes (Death, Hospitalization)
  Sender: FDA-Public Use
  Company Number: PHBS2006TR08016

PATIENT
  Age: 14 Year
  Sex: Male

DRUGS (3)
  1. CYCLOSPORINE [Suspect]
     Indication: RENAL TRANSPLANT
     Dosage: 4 MG/G/D, UNK
     Dates: start: 19980501
  2. PREDNISOLONE [Suspect]
     Indication: RENAL TRANSPLANT
     Dosage: 5 MG/KG EVERY OTHER DAY, UNK
     Dates: start: 19980501
  3. AZATHIOPRINE [Suspect]
     Indication: RENAL TRANSPLANT
     Dosage: 1.5 MG/KG/D, UNK
     Dates: start: 19980501

REACTIONS (16)
  - ABDOMINAL PAIN [None]
  - BACK PAIN [None]
  - BLOOD CREATININE INCREASED [None]
  - BLOOD IMMUNOGLOBULIN M INCREASED [None]
  - COMA [None]
  - CONJUNCTIVITIS [None]
  - ELECTROENCEPHALOGRAM ABNORMAL [None]
  - ENCEPHALITIS POST MEASLES [None]
  - GENERAL PHYSICAL HEALTH DETERIORATION [None]
  - GLOMERULAR FILTRATION RATE DECREASED [None]
  - GRAND MAL CONVULSION [None]
  - MEASLES [None]
  - MENTAL IMPAIRMENT [None]
  - MUSCLE TWITCHING [None]
  - PNEUMONIA [None]
  - SIMPLE PARTIAL SEIZURES [None]
